FAERS Safety Report 23687068 (Version 1)
Quarter: 2024Q1

REPORT INFORMATION
  Report Type: Spontaneous
  Country: US (occurrence: US)
  Receive Date: 20240329
  Receipt Date: 20240329
  Transmission Date: 20240410
  Serious: No
  Sender: FDA-Public Use
  Company Number: US-ACORDA-ACO_176880_2023

PATIENT
  Sex: Female

DRUGS (5)
  1. AMPYRA [Suspect]
     Active Substance: DALFAMPRIDINE
     Indication: Multiple sclerosis
     Dosage: 10 MILLIGRAM, Q12H
     Route: 048
  2. DALFAMPRIDINE [Suspect]
     Active Substance: DALFAMPRIDINE
     Indication: Product used for unknown indication
     Dosage: UNKNOWN
     Route: 065
  3. GABAPENTIN [Concomitant]
     Active Substance: GABAPENTIN
     Indication: Product used for unknown indication
     Dosage: UNKNOWN
     Route: 065
  4. CELEBREX [Concomitant]
     Active Substance: CELECOXIB
     Indication: Product used for unknown indication
     Dosage: UNKNOWN
     Route: 065
  5. TOPAMAX [Concomitant]
     Active Substance: TOPIRAMATE
     Indication: Product used for unknown indication
     Dosage: UNKNOWN
     Route: 065

REACTIONS (10)
  - Pain [Unknown]
  - Fall [Recovered/Resolved]
  - Loss of personal independence in daily activities [Unknown]
  - Feeling abnormal [Unknown]
  - Autoscopy [Unknown]
  - Product dose omission issue [Unknown]
  - Therapy cessation [Recovered/Resolved]
  - Gait disturbance [Unknown]
  - Balance disorder [Unknown]
  - Multiple sclerosis relapse [Recovered/Resolved]
